FAERS Safety Report 14280873 (Version 2)
Quarter: 2018Q1

REPORT INFORMATION
  Report Type: Report from Study
  Country: JP (occurrence: JP)
  Receive Date: 20171213
  Receipt Date: 20180111
  Transmission Date: 20180508
  Serious: Yes (Other)
  Sender: FDA-Public Use
  Company Number: JP-GLAXOSMITHKLINE-JP2017JPN188876

PATIENT
  Age: 60 Year
  Sex: Male

DRUGS (1)
  1. MEPOLIZUMAB [Suspect]
     Active Substance: MEPOLIZUMAB
     Dosage: 100 MG, 1D
     Route: 058

REACTIONS (6)
  - Hypertension [Unknown]
  - Blood uric acid increased [Unknown]
  - Hepatitis C [Unknown]
  - Femur fracture [Unknown]
  - Cataract [Unknown]
  - Hypercholesterolaemia [Unknown]
